FAERS Safety Report 12007158 (Version 5)
Quarter: 2018Q2

REPORT INFORMATION
  Report Type: Spontaneous
  Country: BR (occurrence: BR)
  Receive Date: 20160204
  Receipt Date: 20180517
  Transmission Date: 20180711
  Serious: Yes (Other)
  Sender: FDA-Public Use
  Company Number: BR-PFIZER INC-2016004688

PATIENT
  Age: 75 Year
  Sex: Male

DRUGS (7)
  1. FRONTAL [Suspect]
     Active Substance: ALPRAZOLAM
     Indication: ANXIETY
     Dosage: 0.25 MG, UNK (SPLIT THE 1 MG 4 PARTS)
     Route: 048
     Dates: start: 2012
  2. FRONTAL [Suspect]
     Active Substance: ALPRAZOLAM
     Dosage: 1 TABLET AT NIGHT
  3. TIMOLOL MALEATE. [Concomitant]
     Active Substance: TIMOLOL MALEATE
     Dosage: UNK
  4. FRONTAL [Suspect]
     Active Substance: ALPRAZOLAM
     Dosage: 2 TABLETS PER DAY
     Route: 048
  5. SERTRALINE HCL [Concomitant]
     Active Substance: SERTRALINE HYDROCHLORIDE
     Dosage: UNK
     Dates: start: 201508
  6. PONDERA [Concomitant]
     Active Substance: PAROXETINE HYDROCHLORIDE
     Dosage: UNK
     Dates: end: 201512
  7. FRONTAL [Suspect]
     Active Substance: ALPRAZOLAM
     Indication: INSOMNIA
     Dosage: 1 MG, 1X/DAY (IN THE EVENING)
     Route: 048

REACTIONS (5)
  - Constipation [Recovered/Resolved]
  - Haematochezia [Recovered/Resolved]
  - Drug ineffective [Not Recovered/Not Resolved]
  - Drug dependence [Not Recovered/Not Resolved]
  - Dry mouth [Not Recovered/Not Resolved]

NARRATIVE: CASE EVENT DATE: 2016
